FAERS Safety Report 16013520 (Version 1)
Quarter: 2019Q1

REPORT INFORMATION
  Report Type: Spontaneous
  Country: US (occurrence: US)
  Receive Date: 20190227
  Receipt Date: 20190227
  Transmission Date: 20190418
  Serious: Yes (Hospitalization)
  Sender: FDA-Public Use
  Company Number: US-JNJFOC-20190236401

PATIENT
  Age: 64 Year
  Sex: Male

DRUGS (1)
  1. INVOKANA [Suspect]
     Active Substance: CANAGLIFLOZIN
     Indication: DIABETES MELLITUS
     Dosage: VARYING DOSES OF 300 MG BEFORE BREAKFAST AND 100 MG DAILY
     Route: 048

REACTIONS (2)
  - Toe amputation [Unknown]
  - Gangrene [Unknown]

NARRATIVE: CASE EVENT DATE: 201712
